FAERS Safety Report 24182983 (Version 1)
Quarter: 2024Q3

REPORT INFORMATION
  Report Type: Spontaneous
  Country: US (occurrence: US)
  Receive Date: 20240807
  Receipt Date: 20240807
  Transmission Date: 20241017
  Serious: Yes (Hospitalization, Other)
  Sender: SANOFI AVENTIS
  Company Number: US-SA-SAC20240801001396

PATIENT
  Age: 58 Year
  Sex: Female
  Weight: 86.1 kg

DRUGS (1)
  1. DUPIXENT [Suspect]
     Active Substance: DUPILUMAB
     Indication: Dermatitis atopic
     Dosage: 300 MG, QOW
     Route: 058

REACTIONS (3)
  - Pneumonia [Recovering/Resolving]
  - Coronary artery occlusion [Recovering/Resolving]
  - Nephrectomy [Recovering/Resolving]
